FAERS Safety Report 23897157 (Version 3)
Quarter: 2024Q3

REPORT INFORMATION
  Report Type: Spontaneous
  Country: US (occurrence: US)
  Receive Date: 20240524
  Receipt Date: 20240723
  Transmission Date: 20241017
  Serious: Yes (Other)
  Sender: JOHNSON AND JOHNSON
  Company Number: US-JNJFOC-20240490038

PATIENT
  Sex: Female

DRUGS (1)
  1. VISINE DRY EYE RELIEF [Suspect]
     Active Substance: GLYCERIN\HYPROMELLOSES\POLYETHYLENE GLYCOL 400
     Indication: Product used for unknown indication
     Route: 047

REACTIONS (2)
  - Eye infection [Not Recovered/Not Resolved]
  - Suspected product contamination [Unknown]
